FAERS Safety Report 7687813-8 (Version None)
Quarter: 2011Q3

REPORT INFORMATION
  Report Type: 
  Country: None (occurrence: None)
  Receive Date: 20110817
  Receipt Date: 20110804
  Transmission Date: 20111222
  Serious: Yes (Death, Hospitalization)
  Sender: FDA-Public Use
  Company Number: FR-UCBSA-038539

PATIENT
  Sex: Female

DRUGS (10)
  1. MEMANTINE HYDROCHLORIDE [Concomitant]
     Dosage: 1 TABLET IN THE MORNING
     Route: 048
     Dates: start: 20101201, end: 20110501
  2. OXAZEPAM [Concomitant]
     Dosage: 3 TABLETS DAILY
     Route: 048
  3. CYMBALTA [Suspect]
     Route: 048
     Dates: start: 20110516, end: 20110518
  4. CALCIPARINE [Concomitant]
     Route: 058
     Dates: start: 20110517, end: 20110527
  5. KEPPRA [Suspect]
     Route: 048
     Dates: start: 20110521, end: 20110524
  6. RAMIPRIL [Concomitant]
     Indication: CARDIAC FAILURE
     Dosage: 1 TABLET DAILY
     Route: 048
     Dates: start: 20110518
  7. COUMADIN [Concomitant]
     Indication: PULMONARY EMBOLISM
     Dosage: 1 TABLET IN THE EVENING
     Route: 048
     Dates: start: 20110116, end: 20110501
  8. LASIX [Concomitant]
     Dosage: 1 TABLET IN THE MORNING
     Route: 048
  9. PANTOPRAZOLE [Concomitant]
     Dosage: 1 TABLET IN THE MORNING
     Route: 048
  10. BISOPROLOL FUMARATE [Concomitant]
     Dosage: 1 TABLET IN MORNING
     Route: 048
     Dates: start: 20110201

REACTIONS (3)
  - AGGRESSION [None]
  - ABNORMAL BEHAVIOUR [None]
  - CARDIAC FAILURE [None]
